FAERS Safety Report 13792753 (Version 2)
Quarter: 2017Q4

REPORT INFORMATION
  Report Type: Spontaneous
  Country: GB (occurrence: GB)
  Receive Date: 20170725
  Receipt Date: 20171018
  Transmission Date: 20180320
  Serious: Yes (Death, Other)
  Sender: FDA-Public Use
  Company Number: GB-MYLANLABS-2017M1043020

PATIENT
  Age: 66 Year
  Sex: Female
  Weight: 78 kg

DRUGS (3)
  1. CLOZARIL [Suspect]
     Active Substance: CLOZAPINE
     Indication: SCHIZOPHRENIA
     Dosage: 100 MG, AM
     Route: 048
     Dates: start: 20140424, end: 20170704
  2. CLOZARIL [Suspect]
     Active Substance: CLOZAPINE
     Indication: DELUSION
     Dosage: 125 MG, PM
     Route: 048
     Dates: start: 20140424, end: 20170704
  3. FUROSEMIDE. [Concomitant]
     Active Substance: FUROSEMIDE
     Indication: PRODUCT USED FOR UNKNOWN INDICATION
     Dosage: 40 MG, AM
     Route: 048
     Dates: end: 20170704

REACTIONS (17)
  - Condition aggravated [Fatal]
  - Terminal state [Unknown]
  - High density lipoprotein decreased [Unknown]
  - Blood calcium increased [Unknown]
  - Blood cholesterol increased [Unknown]
  - Blood sodium increased [Unknown]
  - Blood glucose increased [Unknown]
  - Product use in unapproved indication [Recovered/Resolved]
  - Blood bilirubin decreased [Unknown]
  - Blood creatinine decreased [Unknown]
  - Adjusted calcium increased [Unknown]
  - Blood triglycerides increased [Unknown]
  - Blood creatine phosphokinase decreased [Unknown]
  - Glomerular filtration rate increased [Unknown]
  - Chronic obstructive pulmonary disease [Fatal]
  - Haematocrit decreased [Unknown]
  - Haemoglobin decreased [Unknown]

NARRATIVE: CASE EVENT DATE: 20140424
